FAERS Safety Report 24928150 (Version 1)
Quarter: 2025Q1

REPORT INFORMATION
  Report Type: Spontaneous
  Country: US (occurrence: None)
  Receive Date: 20250204
  Receipt Date: 20250204
  Transmission Date: 20250408
  Serious: Yes (Disabling)
  Sender: FDA-CTU
  Company Number: None

PATIENT
  Age: 65 Year
  Sex: Female

DRUGS (10)
  1. ROSUVASTATIN CALCIUM [Suspect]
     Active Substance: ROSUVASTATIN CALCIUM
     Indication: Blood cholesterol increased
     Route: 048
     Dates: start: 20240510, end: 20240704
  2. PROZAC [Suspect]
     Active Substance: FLUOXETINE HYDROCHLORIDE
  3. REPATHA [Suspect]
     Active Substance: EVOLOCUMAB
  4. EPLERENONE [Concomitant]
     Active Substance: EPLERENONE
  5. FINASTERIDE [Concomitant]
     Active Substance: FINASTERIDE
  6. BREO ELLIPTA [Concomitant]
     Active Substance: FLUTICASONE FUROATE\VILANTEROL TRIFENATATE
  7. Ubiquinal [Concomitant]
  8. VITAMINS [Concomitant]
     Active Substance: VITAMINS
  9. DEVICE [Concomitant]
     Active Substance: DEVICE
  10. CARVEDILOL [Concomitant]
     Active Substance: CARVEDILOL

REACTIONS (13)
  - Myalgia [None]
  - Neck pain [None]
  - Brain fog [None]
  - Grip strength decreased [None]
  - Amnesia [None]
  - Emotional distress [None]
  - Back pain [None]
  - Withdrawal syndrome [None]
  - Therapy change [None]
  - Arthralgia [None]
  - Myalgia [None]
  - Frequent bowel movements [None]
  - Abdominal pain upper [None]

NARRATIVE: CASE EVENT DATE: 20240610
